FAERS Safety Report 22245386 (Version 2)
Quarter: 2023Q2

REPORT INFORMATION
  Report Type: Spontaneous
  Country: US (occurrence: US)
  Receive Date: 20230424
  Receipt Date: 20230515
  Transmission Date: 20230721
  Serious: No
  Sender: FDA-Public Use
  Company Number: US-TAKEDA-2023TUS038362

PATIENT
  Sex: Female
  Weight: 61 kg

DRUGS (3)
  1. VYVANSE [Suspect]
     Active Substance: LISDEXAMFETAMINE DIMESYLATE
     Indication: Autonomic neuropathy
     Dosage: 30 MILLIGRAM
     Route: 065
  2. ADDERALL XR [Suspect]
     Active Substance: AMPHETAMINE ASPARTATE\AMPHETAMINE SULFATE\DEXTROAMPHETAMINE SACCHARATE\DEXTROAMPHETAMINE SULFATE
     Indication: Autonomic neuropathy
     Dosage: 20 MILLIGRAM, BID
     Route: 065
  3. AMITRIPTYLINE [Concomitant]
     Active Substance: AMITRIPTYLINE
     Indication: Product used for unknown indication
     Route: 065

REACTIONS (7)
  - Drug ineffective [Unknown]
  - Anxiety [Unknown]
  - Irritability [Unknown]
  - Off label use [Unknown]
  - Product prescribing error [Unknown]
  - Product use issue [Unknown]
  - Product availability issue [Unknown]
